FAERS Safety Report 24258423 (Version 9)
Quarter: 2024Q4

REPORT INFORMATION
  Report Type: Spontaneous
  Country: IN (occurrence: IN)
  Receive Date: 20240828
  Receipt Date: 20241007
  Transmission Date: 20250115
  Serious: Yes (Hospitalization, Other)
  Sender: PFIZER
  Company Number: IN-PFIZER INC-PV202400065644

PATIENT
  Age: 41 Year
  Sex: Male

DRUGS (1)
  1. CRIZOTINIB [Suspect]
     Active Substance: CRIZOTINIB
     Indication: Inflammatory myofibroblastic tumour
     Dosage: 250 MG, 2X/DAY
     Route: 048
     Dates: start: 20210916

REACTIONS (14)
  - Oedema peripheral [Recovered/Resolved with Sequelae]
  - Dyspnoea [Recovered/Resolved with Sequelae]
  - Pleural effusion [Recovered/Resolved with Sequelae]
  - Myocardial infarction [Unknown]
  - Drug effective for unapproved indication [Unknown]
  - Neoplasm progression [Unknown]
  - General physical health deterioration [Unknown]
  - Cellulitis [Unknown]
  - Dermatitis psoriasiform [Unknown]
  - Diastolic dysfunction [Not Recovered/Not Resolved]
  - Haemoglobin abnormal [Unknown]
  - Abdominal pain upper [Unknown]
  - Malaise [Unknown]
  - Off label use [Unknown]

NARRATIVE: CASE EVENT DATE: 20210916
